FAERS Safety Report 11802502 (Version 1)
Quarter: 2015Q4

REPORT INFORMATION
  Report Type: Spontaneous
  Country: EG (occurrence: EG)
  Receive Date: 20151204
  Receipt Date: 20151204
  Transmission Date: 20160305
  Serious: Yes (Death, Other)
  Sender: FDA-Public Use
  Company Number: EG-PFIZER INC-2015405278

PATIENT
  Age: 57 Year
  Sex: Female

DRUGS (6)
  1. DIAMICRON [Concomitant]
     Active Substance: GLICLAZIDE
     Indication: DIABETES MELLITUS
     Dosage: 60 MG, UNK
     Route: 048
  2. SUTENT [Suspect]
     Active Substance: SUNITINIB MALATE
     Dosage: 37.5 MG/DAY CYCLIC (2/1 SCHEDULE)
  3. SUTENT [Suspect]
     Active Substance: SUNITINIB MALATE
     Dosage: 37.5 MG/DAY CYCLIC
     Dates: start: 20130118
  4. CAPOZIDE [Concomitant]
     Active Substance: CAPTOPRIL\HYDROCHLOROTHIAZIDE
     Indication: HYPERTENSION
     Dosage: 25 MG, UNK
  5. CAPOZIDE [Concomitant]
     Active Substance: CAPTOPRIL\HYDROCHLOROTHIAZIDE
     Dosage: 12.5 MG, 1X/DAY
  6. SUTENT [Suspect]
     Active Substance: SUNITINIB MALATE
     Indication: METASTATIC RENAL CELL CARCINOMA
     Dosage: 50 MG/DAY, CYCLIC
     Dates: start: 20121129

REACTIONS (12)
  - Fatigue [Fatal]
  - Stomatitis [Unknown]
  - Vomiting [Unknown]
  - Mucosal inflammation [Recovered/Resolved]
  - Palmar-plantar erythrodysaesthesia syndrome [Unknown]
  - Dysphagia [Unknown]
  - Gingival bleeding [Unknown]
  - Hypothyroidism [Unknown]
  - Blood pressure increased [Unknown]
  - Diarrhoea [Unknown]
  - Haematemesis [Unknown]
  - Epistaxis [Unknown]

NARRATIVE: CASE EVENT DATE: 20130103
